FAERS Safety Report 9738405 (Version 4)
Quarter: 2014Q3

REPORT INFORMATION
  Report Type: Report from Study
  Country: DE (occurrence: DE)
  Receive Date: 20131208
  Receipt Date: 20140717
  Transmission Date: 20150326
  Serious: Yes (Hospitalization)
  Sender: FDA-Public Use
  Company Number: DE-ROCHE-1206897

PATIENT
  Age: 72 Year
  Sex: Female
  Weight: 75 kg

DRUGS (15)
  1. BEVACIZUMAB [Suspect]
     Active Substance: BEVACIZUMAB
     Dosage: TOTAL DOSE 1100 MG. LAST DOSE PRIOR TO SAE: 27/FEB/2013
     Route: 042
     Dates: start: 20130227, end: 20130227
  2. CARBOPLATIN. [Concomitant]
     Active Substance: CARBOPLATIN
     Indication: OVARIAN CANCER
     Route: 042
     Dates: start: 20120807, end: 20120807
  3. CARBOPLATIN. [Concomitant]
     Active Substance: CARBOPLATIN
     Route: 042
     Dates: start: 20121023, end: 20121023
  4. CARBOPLATIN. [Concomitant]
     Active Substance: CARBOPLATIN
     Route: 042
     Dates: start: 20121113, end: 20121113
  5. BEVACIZUMAB [Suspect]
     Active Substance: BEVACIZUMAB
     Dosage: TOTAL DOSE 1120 MG. LAST DOSE PRIOR TO SAE: 29/JAN/2014.
     Route: 042
     Dates: start: 20140129, end: 20140129
  6. PACLITAXEL. [Concomitant]
     Active Substance: PACLITAXEL
     Indication: OVARIAN CANCER
     Route: 042
     Dates: start: 20120807, end: 20120807
  7. PACLITAXEL. [Concomitant]
     Active Substance: PACLITAXEL
     Route: 042
     Dates: start: 20121113, end: 20121113
  8. CARBOPLATIN. [Concomitant]
     Active Substance: CARBOPLATIN
     Route: 042
     Dates: start: 20121204, end: 20121204
  9. BEVACIZUMAB [Suspect]
     Active Substance: BEVACIZUMAB
     Indication: OVARIAN CANCER
     Dosage: TOTAL DOSE 555 MG. LAST DOSE PRIOR TO SAE: 27/FEB/2013
     Route: 042
     Dates: start: 20120828, end: 20120828
  10. PACLITAXEL. [Concomitant]
     Active Substance: PACLITAXEL
     Route: 042
     Dates: start: 20121204, end: 20121204
  11. CARBOPLATIN. [Concomitant]
     Active Substance: CARBOPLATIN
     Route: 042
     Dates: start: 20120828, end: 20120828
  12. PACLITAXEL. [Concomitant]
     Active Substance: PACLITAXEL
     Route: 042
     Dates: start: 20121002, end: 20121002
  13. PACLITAXEL. [Concomitant]
     Active Substance: PACLITAXEL
     Route: 042
     Dates: start: 20121023, end: 20121023
  14. PACLITAXEL. [Concomitant]
     Active Substance: PACLITAXEL
     Route: 042
     Dates: start: 20120828, end: 20120828
  15. CARBOPLATIN. [Concomitant]
     Active Substance: CARBOPLATIN
     Route: 042
     Dates: start: 20121002, end: 20121002

REACTIONS (5)
  - Febrile infection [Recovered/Resolved]
  - Nephrolithiasis [Recovered/Resolved]
  - Ileus [Not Recovered/Not Resolved]
  - Hydronephrosis [Unknown]
  - Renal colic [Recovered/Resolved]

NARRATIVE: CASE EVENT DATE: 20130317
